FAERS Safety Report 20418229 (Version 1)
Quarter: 2022Q1

REPORT INFORMATION
  Report Type: Spontaneous
  Country: US (occurrence: None)
  Receive Date: 20220202
  Receipt Date: 20220202
  Transmission Date: 20220423
  Serious: Yes (Life-Threatening, Hospitalization)
  Sender: FDA-Public Use
  Company Number: None

PATIENT
  Age: 67 Year
  Sex: Male
  Weight: 47 kg

DRUGS (2)
  1. ELIQUIS [Suspect]
     Active Substance: APIXABAN
     Indication: Pulmonary embolism
     Dosage: FREQUENCY : TWICE A DAY;?
     Route: 048
     Dates: start: 20220128, end: 20220201
  2. ASPIRIN [Concomitant]
     Active Substance: ASPIRIN

REACTIONS (10)
  - Haemoglobin decreased [None]
  - Mental status changes [None]
  - Hypoglycaemia [None]
  - Bradycardia [None]
  - Hypotension [None]
  - Acute respiratory failure [None]
  - COVID-19 pneumonia [None]
  - Pleural effusion [None]
  - Haemothorax [None]
  - Catheter site haemorrhage [None]

NARRATIVE: CASE EVENT DATE: 20220201
